FAERS Safety Report 17876504 (Version 3)
Quarter: 2021Q4

REPORT INFORMATION
  Report Type: Other
  Country: AU (occurrence: AU)
  Receive Date: 20200609
  Receipt Date: 20211017
  Transmission Date: 20220304
  Serious: Yes (Other)
  Sender: FDA-Public Use
  Company Number: AU-TOLMAR, INC.-20AU020016

PATIENT
  Sex: Male

DRUGS (1)
  1. ELIGARD [Suspect]
     Active Substance: LEUPROLIDE ACETATE
     Indication: Prostate cancer
     Dosage: 22.5 MG, Q 3 MONTH
     Route: 058

REACTIONS (3)
  - Weight decreased [Not Recovered/Not Resolved]
  - Fluid intake reduced [Unknown]
  - Decreased appetite [Unknown]
